FAERS Safety Report 6659168 (Version 1)
Quarter: 2020Q3

REPORT INFORMATION
  Report Type: Report from Study
  Country: NL (occurrence: NL)
  Receive Date: 20080606
  Receipt Date: 20080606
  Transmission Date: 20201104
  Serious: Yes (Death, Other)
  Sender: FDA-Public Use
  Company Number: NL-ROCHE-567739

PATIENT

DRUGS (3)
  1. INDISULAM [Suspect]
     Active Substance: INDISULAM
     Dosage: DAY 1
     Route: 042
  2. CAPECITABINE. [Suspect]
     Active Substance: CAPECITABINE
     Route: 048
  3. INDISULAM [Suspect]
     Active Substance: INDISULAM
     Dosage: DAY1 TOLERATED DOSAGE
     Route: 042

REACTIONS (13)
  - Anaemia [Unknown]
  - Leukopenia [Unknown]
  - Febrile neutropenia [Unknown]
  - Death [Fatal]
  - Arrhythmia [Fatal]
  - Thrombocytopenia [Unknown]
  - Constipation [Unknown]
  - Skin reaction [Unknown]
  - Stomatitis [Unknown]
  - Fatigue [Unknown]
  - Abdominal pain [Unknown]
  - Diarrhoea [Unknown]
  - Neutropenia [Unknown]
